FAERS Safety Report 7251622-4 (Version None)
Quarter: 2011Q1

REPORT INFORMATION
  Report Type: 
  Country: None (occurrence: None)
  Receive Date: 20110128
  Receipt Date: 20110127
  Transmission Date: 20110831
  Serious: Yes (Death)
  Sender: FDA-Public Use
  Company Number: US-PFIZER INC-2011020444

PATIENT
  Sex: Male

DRUGS (1)
  1. PROTONIX [Suspect]
     Dosage: UNK
     Dates: start: 20100908, end: 20110127

REACTIONS (1)
  - DEATH [None]
